FAERS Safety Report 18870713 (Version 1)
Quarter: 2021Q1

REPORT INFORMATION
  Report Type: Report from Study
  Country: BG (occurrence: BG)
  Receive Date: 20210210
  Receipt Date: 20210210
  Transmission Date: 20210420
  Serious: No
  Sender: FDA-Public Use
  Company Number: BG-TOLMAR, INC.-21BG025264

PATIENT
  Sex: Male

DRUGS (1)
  1. ELIGARD [Suspect]
     Active Substance: LEUPROLIDE ACETATE
     Indication: PROSTATE CANCER
     Dosage: 45 MG
     Route: 065

REACTIONS (3)
  - Hepatic enzyme increased [Unknown]
  - Hot flush [Unknown]
  - Hyperhidrosis [Unknown]
